FAERS Safety Report 7266800-8 (Version None)
Quarter: 2011Q1

REPORT INFORMATION
  Report Type: 
  Country: None (occurrence: None)
  Receive Date: 20110121
  Receipt Date: 20000218
  Transmission Date: 20110831
  Serious: Yes (Hospitalization)
  Sender: FDA-Public Use
  Company Number: LEO-2011-00040

PATIENT
  Age: 50 Year
  Sex: Male

DRUGS (1)
  1. INNOHEP [Suspect]
     Indication: THROMBOSIS PROPHYLAXIS
     Dosage: 4500 IU (4500 IU), SUBCUTANEOUS
     Route: 058

REACTIONS (5)
  - POLYNEUROPATHY [None]
  - ISCHAEMIA [None]
  - OFF LABEL USE [None]
  - MUSCULAR WEAKNESS [None]
  - PARAESTHESIA [None]
